FAERS Safety Report 6792861-6 (Version None)
Quarter: 2010Q2

REPORT INFORMATION
  Report Type: 
  Country: None (occurrence: None)
  Receive Date: 20100624
  Receipt Date: 20081119
  Transmission Date: 20101027
  Serious: No
  Sender: FDA-Public Use
  Company Number: US-PFIZER INC-2008085557

PATIENT
  Sex: Female
  Weight: 81.65 kg

DRUGS (10)
  1. CADUET [Suspect]
     Indication: BLOOD CHOLESTEROL INCREASED
  2. CADUET [Suspect]
     Indication: HYPERTENSION
  3. TAMOXIFEN [Concomitant]
  4. ACETYLSALICYLIC ACID [Concomitant]
  5. FISH OIL [Concomitant]
  6. ZETIA [Concomitant]
     Indication: BLOOD CHOLESTEROL INCREASED
  7. MULTI-VITAMINS [Concomitant]
  8. VITAMINS WITH MINERALS [Concomitant]
  9. PFIZERPEN [Concomitant]
  10. COMPAZINE [Concomitant]

REACTIONS (8)
  - ARTHRALGIA [None]
  - BACK PAIN [None]
  - BLOOD CHOLESTEROL INCREASED [None]
  - MASS [None]
  - PAIN IN EXTREMITY [None]
  - PAIN IN JAW [None]
  - RASH [None]
  - WRONG TECHNIQUE IN DRUG USAGE PROCESS [None]
